FAERS Safety Report 19141695 (Version 31)
Quarter: 2023Q4

REPORT INFORMATION
  Report Type: Spontaneous
  Country: US (occurrence: US)
  Receive Date: 20210415
  Receipt Date: 20231201
  Transmission Date: 20240110
  Serious: Yes (Other)
  Sender: FDA-Public Use
  Company Number: US-PFIZER INC-2021382122

PATIENT
  Age: 57 Year
  Sex: Female

DRUGS (4)
  1. XELJANZ [Suspect]
     Active Substance: TOFACITINIB CITRATE
     Indication: Rheumatoid arthritis
     Dosage: 5 MG, 2X/DAY
     Route: 048
     Dates: start: 20210325, end: 20220325
  2. XELJANZ [Suspect]
     Active Substance: TOFACITINIB CITRATE
     Dosage: 5 MG, 2X/DAY
     Route: 048
  3. XELJANZ [Suspect]
     Active Substance: TOFACITINIB CITRATE
     Dosage: 5 MG, 1X/DAY
     Route: 048
  4. XELJANZ [Suspect]
     Active Substance: TOFACITINIB CITRATE
     Dosage: 10 MG, 2X/DAY (TAKE 2 TABLETS (10 MG) BY MOUTH 2 (TWO) TIMES A DAY)
     Route: 048

REACTIONS (47)
  - Acute kidney injury [Not Recovered/Not Resolved]
  - Hip fracture [Unknown]
  - Mental impairment [Unknown]
  - Autoimmune myositis [Unknown]
  - Chest injury [Unknown]
  - Joint swelling [Unknown]
  - Joint lock [Unknown]
  - Rib fracture [Unknown]
  - Bronchitis [Unknown]
  - Knee operation [Unknown]
  - Shoulder operation [Unknown]
  - Knee arthroplasty [Not Recovered/Not Resolved]
  - Foot fracture [Unknown]
  - Pneumonia [Not Recovered/Not Resolved]
  - Lower respiratory tract infection [Not Recovered/Not Resolved]
  - Bone disorder [Unknown]
  - Movement disorder [Unknown]
  - Arthritis [Unknown]
  - Pain [Unknown]
  - Musculoskeletal chest pain [Unknown]
  - Alopecia [Unknown]
  - Sinusitis [Unknown]
  - Back disorder [Unknown]
  - Musculoskeletal stiffness [Unknown]
  - Peripheral swelling [Unknown]
  - Swelling [Unknown]
  - Infection [Unknown]
  - COVID-19 [Unknown]
  - Illness [Unknown]
  - Fatigue [Unknown]
  - Burning sensation [Unknown]
  - Hypoaesthesia [Unknown]
  - Pain in extremity [Unknown]
  - Muscle swelling [Unknown]
  - Dyspnoea [Unknown]
  - Exposure to toxic agent [Unknown]
  - Limb discomfort [Unknown]
  - Cough [Unknown]
  - Pyrexia [Recovered/Resolved]
  - Impaired work ability [Unknown]
  - Malaise [Unknown]
  - Product prescribing error [Unknown]
  - Product use issue [Unknown]
  - Product dispensing error [Unknown]
  - Extra dose administered [Unknown]
  - Memory impairment [Not Recovered/Not Resolved]
  - Decreased immune responsiveness [Unknown]

NARRATIVE: CASE EVENT DATE: 20210101
